FAERS Safety Report 10959334 (Version 1)
Quarter: 2015Q1

REPORT INFORMATION
  Report Type: Report from Study
  Country: FR (occurrence: FR)
  Receive Date: 20150327
  Receipt Date: 20150327
  Transmission Date: 20150721
  Serious: Yes (Death, Hospitalization, Other)
  Sender: FDA-Public Use
  Company Number: FR-ROCHE-1162522

PATIENT
  Age: 75 Year
  Sex: Male

DRUGS (7)
  1. OXYGEN THERAPY [Concomitant]
     Active Substance: OXYGEN
  2. RITUXIMAB [Suspect]
     Active Substance: RITUXIMAB
     Route: 042
     Dates: start: 20080304, end: 20080318
  3. RITUXIMAB [Suspect]
     Active Substance: RITUXIMAB
     Route: 042
     Dates: start: 20091130, end: 20091214
  4. RITUXIMAB [Suspect]
     Active Substance: RITUXIMAB
     Indication: RHEUMATOID ARTHRITIS
     Dosage: DAY 1 AND 15
     Route: 042
     Dates: start: 20070622, end: 20070705
  5. CORTANCYL [Concomitant]
     Active Substance: PREDNISONE
     Route: 065
  6. CORTANCYL [Concomitant]
     Active Substance: PREDNISONE
     Route: 065
  7. RITUXIMAB [Suspect]
     Active Substance: RITUXIMAB
     Route: 042
     Dates: start: 20090226, end: 20090313

REACTIONS (5)
  - Bronchospasm [Recovered/Resolved]
  - Bronchopneumonia [Recovered/Resolved]
  - Prostate cancer [Fatal]
  - Bronchitis [Recovered/Resolved]
  - Respiratory failure [Recovered/Resolved]

NARRATIVE: CASE EVENT DATE: 20080306
